FAERS Safety Report 7236958-5 (Version None)
Quarter: 2011Q1

REPORT INFORMATION
  Report Type: 
  Country: None (occurrence: None)
  Receive Date: 20110121
  Receipt Date: 20110111
  Transmission Date: 20110831
  Serious: Yes (Other)
  Sender: FDA-Public Use
  Company Number: FR-BIOGENIDEC-2011BI001575

PATIENT
  Age: 42 Year
  Sex: Male

DRUGS (7)
  1. LAXATIVE (NOS) [Concomitant]
     Indication: LAXATIVE SUPPORTIVE CARE
  2. ASTHMA MEDICATION (NOS) [Concomitant]
     Indication: ASTHMA
  3. VENTOLIN [Concomitant]
     Indication: ASTHMA
  4. DI-HYDAN [Concomitant]
     Indication: EPILEPSY
  5. PAIN MEDICATION (NOS) [Concomitant]
     Indication: PAIN
  6. TYSABRI [Suspect]
     Indication: MULTIPLE SCLEROSIS
     Route: 042
     Dates: start: 20080808
  7. AERIUS [Concomitant]
     Indication: HYPERSENSITIVITY

REACTIONS (1)
  - LIVER DISORDER [None]
